FAERS Safety Report 23586733 (Version 3)
Quarter: 2024Q1

REPORT INFORMATION
  Report Type: Spontaneous
  Country: US (occurrence: US)
  Receive Date: 20240301
  Receipt Date: 20240329
  Transmission Date: 20240409
  Serious: Yes (Other)
  Sender: FDA-Public Use
  Company Number: US-PFIZER INC-PV202400027544

PATIENT
  Age: 62 Year
  Sex: Female
  Weight: 77.098 kg

DRUGS (12)
  1. IBRANCE [Suspect]
     Active Substance: PALBOCICLIB
     Indication: Breast cancer metastatic
     Dosage: 125 MG 1X DAY 21 DAYS ON / 7 OFF
     Dates: start: 20210130
  2. LETROZOLE [Suspect]
     Active Substance: LETROZOLE
     Indication: Breast cancer metastatic
     Dosage: 2.5 MG 1X DAY
     Dates: start: 20210130
  3. BERBERINE [Concomitant]
     Active Substance: BERBERINE
     Dosage: UNK
  4. COQ10 [ASCORBIC ACID;BETACAROTENE;CUPRIC OXIDE;MANGANESE SULFATE;SELEN [Concomitant]
     Dosage: UNK
     Dates: start: 20210515
  5. DIETARY SUPPLEMENT [Concomitant]
     Active Substance: DIETARY SUPPLEMENT
     Dosage: UNK
     Dates: start: 20210515
  6. LYSINE [Concomitant]
     Active Substance: LYSINE
     Dosage: UNK
     Dates: start: 20210515
  7. MAGNESIUM [Concomitant]
     Active Substance: MAGNESIUM
     Dosage: UNK
  8. MAGNESIUM GLYCINATE [Concomitant]
     Active Substance: MAGNESIUM GLYCINATE
     Dosage: UNK
     Dates: start: 20210515
  9. MELATONIN [Concomitant]
     Active Substance: MELATONIN
     Dosage: UNK
     Dates: start: 20210515
  10. FISH OIL [Concomitant]
     Active Substance: FISH OIL
     Dosage: UNK
     Dates: start: 20210515
  11. CYANOCOBALAMIN [Concomitant]
     Active Substance: CYANOCOBALAMIN
     Dosage: UNK
  12. ZINC [Concomitant]
     Active Substance: PYRITHIONE ZINC\ZINC\ZINC CHLORIDE
     Dosage: UNK
     Dates: start: 20210515

REACTIONS (11)
  - Lymphoid tissue operation [Unknown]
  - Arthralgia [Recovering/Resolving]
  - White blood cell count decreased [Recovering/Resolving]
  - Pain [Recovering/Resolving]
  - Vision blurred [Recovering/Resolving]
  - Alopecia [Recovering/Resolving]
  - Osteopenia [Recovering/Resolving]
  - Dyspepsia [Recovering/Resolving]
  - Rhinorrhoea [Recovering/Resolving]
  - COVID-19 [Unknown]
  - Lymphoedema [Unknown]

NARRATIVE: CASE EVENT DATE: 20210215
